FAERS Safety Report 13749166 (Version 1)
Quarter: 2017Q3

REPORT INFORMATION
  Report Type: Spontaneous
  Country: US (occurrence: US)
  Receive Date: 20170713
  Receipt Date: 20170713
  Transmission Date: 20171127
  Serious: Yes (Other)
  Sender: FDA-Public Use
  Company Number: None

PATIENT
  Age: 62 Year
  Sex: Female
  Weight: 66.15 kg

DRUGS (4)
  1. MULTI VITAMIN [Concomitant]
     Active Substance: VITAMINS
  2. MONTLUKALAST [Concomitant]
  3. VITAMIN D [Concomitant]
     Active Substance: CHOLECALCIFEROL
  4. OTEZLA [Suspect]
     Active Substance: APREMILAST
     Indication: PSORIASIS
     Dates: start: 20170527, end: 20170527

REACTIONS (6)
  - Abnormal faeces [None]
  - Impaired work ability [None]
  - Pain [None]
  - Abdominal discomfort [None]
  - Vomiting [None]
  - Rectal haemorrhage [None]

NARRATIVE: CASE EVENT DATE: 20170527
